FAERS Safety Report 9737817 (Version 1)
Quarter: 2013Q4

REPORT INFORMATION
  Report Type: Spontaneous
  Country: US (occurrence: US)
  Receive Date: 20131208
  Receipt Date: 20131208
  Transmission Date: 20140711
  Serious: No
  Sender: FDA-Public Use
  Company Number: -SAAVPROD-RENA-1001901

PATIENT
  Sex: 0

DRUGS (1)
  1. SEVELAMER CARBONATE [Suspect]
     Indication: PRODUCT USED FOR UNKNOWN INDICATION
     Dosage: 8 G, QD (10 TABLETS OF 800 MG; 5 TABLETS TWICE DAILY REGULARLY)
     Route: 048

REACTIONS (4)
  - Arthralgia [Unknown]
  - Joint stiffness [Unknown]
  - Pain [Unknown]
  - Rash [Unknown]
